FAERS Safety Report 9867784 (Version 2)
Quarter: 2014Q1

REPORT INFORMATION
  Report Type: Spontaneous
  Country: US (occurrence: US)
  Receive Date: 20140204
  Receipt Date: 20140211
  Transmission Date: 20141002
  Serious: Yes (Hospitalization)
  Sender: FDA-Public Use
  Company Number: US-BAXTER-2014BAX004873

PATIENT
  Sex: Female

DRUGS (2)
  1. DIANEAL LOW CALCIUM (ULTRABAG) [Suspect]
     Indication: PERITONEAL DIALYSIS
     Route: 033
  2. DIANEAL LOW CALCIUM (ULTRABAG) [Suspect]
     Indication: TRANSPLANT FAILURE
     Route: 033

REACTIONS (4)
  - Bloody peritoneal effluent [Recovering/Resolving]
  - Renal pain [Recovering/Resolving]
  - Haemoglobin decreased [Recovering/Resolving]
  - Kidney transplant rejection [Not Recovered/Not Resolved]
